FAERS Safety Report 19717548 (Version 1)
Quarter: 2021Q3

REPORT INFORMATION
  Report Type: Spontaneous
  Country: US (occurrence: US)
  Receive Date: 20210818
  Receipt Date: 20210818
  Transmission Date: 20211014
  Serious: Yes (Hospitalization)
  Sender: FDA-Public Use
  Company Number: US-ASTRAZENECA-2021A677291

PATIENT
  Age: 23 Year
  Sex: Male
  Weight: 53.3 kg

DRUGS (1)
  1. KOSELUGO [Suspect]
     Active Substance: SELUMETINIB
     Indication: NEUROFIBROSARCOMA
     Route: 048
     Dates: end: 20210807

REACTIONS (3)
  - Product dose omission issue [Unknown]
  - Neoplasm [Unknown]
  - Dysphagia [Unknown]

NARRATIVE: CASE EVENT DATE: 2021
